FAERS Safety Report 4608822-9 (Version None)
Quarter: 2005Q1

REPORT INFORMATION
  Report Type: 
  Country: None (occurrence: None)
  Receive Date: 20050311
  Receipt Date: 20050301
  Transmission Date: 20050727
  Serious: Yes (Other)
  Sender: FDA-Public Use
  Company Number: 2005035446

PATIENT
  Age: 75 Year
  Sex: Female

DRUGS (2)
  1. CELEBREX [Suspect]
     Indication: CARDIAC DISORDER
     Dosage: 200 MG (200 MG, 1 IN 1 D), ORAL
     Route: 048
     Dates: start: 20000101, end: 20010212
  2. PRAVASTATIN [Concomitant]

REACTIONS (8)
  - ASTHENIA [None]
  - FALL [None]
  - HEADACHE [None]
  - HEMIPLEGIA [None]
  - INSOMNIA [None]
  - MONOPLEGIA [None]
  - PAIN IN EXTREMITY [None]
  - PARALYSIS [None]
